FAERS Safety Report 16789869 (Version 1)
Quarter: 2019Q3

REPORT INFORMATION
  Report Type: Spontaneous
  Country: CN (occurrence: CN)
  Receive Date: 20190910
  Receipt Date: 20190910
  Transmission Date: 20191005
  Serious: Yes (Death, Other)
  Sender: FDA-Public Use
  Company Number: CN-FRESENIUS KABI-FK201909847

PATIENT

DRUGS (2)
  1. POLYMYXIN B (MANUFACTURER UNKNOWN) [Suspect]
     Active Substance: POLYMYXIN B
     Indication: DRUG RESISTANCE
  2. POLYMYXIN B (MANUFACTURER UNKNOWN) [Suspect]
     Active Substance: POLYMYXIN B
     Indication: KLEBSIELLA INFECTION
     Route: 042

REACTIONS (3)
  - Klebsiella infection [Fatal]
  - Septic shock [Fatal]
  - Acute kidney injury [Not Recovered/Not Resolved]
